FAERS Safety Report 23971567 (Version 3)
Quarter: 2024Q2

REPORT INFORMATION
  Report Type: Report from Study
  Country: ZA (occurrence: ZA)
  Receive Date: 20240613
  Receipt Date: 20240624
  Transmission Date: 20240716
  Serious: Yes (Other)
  Sender: FDA-Public Use
  Company Number: ZA-002147023-NVSC2024ZA122214

PATIENT
  Age: 63 Year
  Sex: Female

DRUGS (1)
  1. SIPONIMOD [Suspect]
     Active Substance: SIPONIMOD
     Indication: Multiple sclerosis
     Dosage: 2 MG, QD
     Route: 048
     Dates: start: 20230305

REACTIONS (4)
  - Cerebellar atrophy [Not Recovered/Not Resolved]
  - Expanded disability status scale score increased [Not Recovered/Not Resolved]
  - Multiple sclerosis relapse [Not Recovered/Not Resolved]
  - Treatment failure [Not Recovered/Not Resolved]
